FAERS Safety Report 8115852-1 (Version None)
Quarter: 2012Q1

REPORT INFORMATION
  Report Type: 
  Country: None (occurrence: None)
  Receive Date: 20120206
  Receipt Date: 20120125
  Transmission Date: 20120608
  Serious: Yes (Other)
  Sender: FDA-Public Use
  Company Number: US-JNJFOC-20120111394

PATIENT
  Sex: Male
  Weight: 83.92 kg

DRUGS (11)
  1. REMICADE [Suspect]
     Indication: COLITIS ULCERATIVE
     Route: 042
     Dates: start: 20111101, end: 20111223
  2. REMICADE [Suspect]
     Route: 042
     Dates: start: 20110101, end: 20111101
  3. WARFARIN SODIUM [Concomitant]
     Indication: ANTICOAGULANT THERAPY
     Route: 048
     Dates: start: 20040101
  4. FOLIC ACID [Concomitant]
     Indication: MEDICAL DIET
     Dosage: 1000 MCG
     Route: 048
     Dates: start: 20080101
  5. BENADRYL [Concomitant]
     Indication: PREMEDICATION
     Route: 065
  6. LORAZEPAM [Concomitant]
     Dosage: 1000 MCG
     Route: 048
     Dates: start: 20040101
  7. REMICADE [Suspect]
     Indication: ANKYLOSING SPONDYLITIS
     Route: 042
     Dates: start: 20111101, end: 20111223
  8. REMICADE [Suspect]
     Route: 042
     Dates: start: 20110101, end: 20111101
  9. REMICADE [Suspect]
     Route: 042
     Dates: start: 20090101, end: 20110101
  10. OMEPRAZOLE [Concomitant]
     Indication: GASTRIC DISORDER
     Route: 048
  11. REMICADE [Suspect]
     Route: 042
     Dates: start: 20090101, end: 20110101

REACTIONS (10)
  - PARAESTHESIA [None]
  - INFUSION RELATED REACTION [None]
  - MYALGIA [None]
  - DIARRHOEA [None]
  - FEELING JITTERY [None]
  - FEELING COLD [None]
  - NAUSEA [None]
  - TRANCE [None]
  - FEELING ABNORMAL [None]
  - PYREXIA [None]
